FAERS Safety Report 6194294-2 (Version None)
Quarter: 2009Q2

REPORT INFORMATION
  Report Type: 
  Country: None (occurrence: None)
  Receive Date: 20090519
  Receipt Date: 20090515
  Transmission Date: 20091009
  Serious: Yes (Hospitalization)
  Sender: FDA-Public Use
  Company Number: US-BRISTOL-MYERS SQUIBB COMPANY-14609523

PATIENT
  Age: 65 Year
  Sex: Male
  Weight: 68 kg

DRUGS (2)
  1. CISPLATIN [Suspect]
     Indication: LARYNGEAL CANCER
     Dosage: INITIAL DOSE: 21MAR2009
     Dates: start: 20090402, end: 20090402
  2. RADIATION THERAPY [Suspect]
     Indication: LARYNGEAL CANCER
     Dosage: 1 DF=7000 CGY INITIAL DOSE: 12MAR2009 NO OF FRACTIONS:35 NO OF ELASPSED DAYS: 45
     Dates: start: 20090427, end: 20090427

REACTIONS (8)
  - DEHYDRATION [None]
  - DYSPHAGIA [None]
  - HAEMOGLOBIN DECREASED [None]
  - NAUSEA [None]
  - OESOPHAGITIS [None]
  - TROPONIN I INCREASED [None]
  - VOMITING [None]
  - WHITE BLOOD CELL COUNT DECREASED [None]
